FAERS Safety Report 4882073-5 (Version None)
Quarter: 2006Q1

REPORT INFORMATION
  Report Type: 
  Country: None (occurrence: None)
  Receive Date: 20060117
  Receipt Date: 20041115
  Transmission Date: 20060701
  Serious: Yes (Hospitalization, Disabling)
  Sender: FDA-Public Use
  Company Number: US-MERCK-0411USA02612

PATIENT
  Age: 67 Year
  Sex: Female
  Weight: 61 kg

DRUGS (10)
  1. VIOXX [Suspect]
     Indication: ARTHRITIS
     Route: 048
     Dates: start: 20000101, end: 20040901
  2. VIOXX [Suspect]
     Route: 048
     Dates: start: 20000101, end: 20040901
  3. VIOXX [Suspect]
     Route: 048
     Dates: start: 20000101, end: 20040901
  4. VIOXX [Suspect]
     Route: 048
     Dates: start: 20000101, end: 20040901
  5. VIOXX [Suspect]
     Indication: SPINAL COLUMN STENOSIS
     Route: 048
     Dates: start: 20000101, end: 20040901
  6. VIOXX [Suspect]
     Route: 048
     Dates: start: 20000101, end: 20040901
  7. VIOXX [Suspect]
     Route: 048
     Dates: start: 20000101, end: 20040901
  8. VIOXX [Suspect]
     Route: 048
     Dates: start: 20000101, end: 20040901
  9. TYLENOL (CAPLET) [Concomitant]
     Route: 065
  10. MEDROL [Concomitant]
     Route: 065
     Dates: end: 20000201

REACTIONS (33)
  - ANXIETY [None]
  - ARTERIOSCLEROSIS CORONARY ARTERY [None]
  - BURSITIS [None]
  - CELLULITIS [None]
  - CEREBROVASCULAR ACCIDENT [None]
  - COUGH [None]
  - DEEP VEIN THROMBOSIS [None]
  - DIARRHOEA [None]
  - DRUG INEFFECTIVE [None]
  - DRY MOUTH [None]
  - DYSPEPSIA [None]
  - ECCHYMOSIS [None]
  - GLAUCOMA [None]
  - HYPERLIPIDAEMIA [None]
  - INTERMITTENT CLAUDICATION [None]
  - LUMBAR RADICULOPATHY [None]
  - MAJOR DEPRESSION [None]
  - MYOCARDIAL INFARCTION [None]
  - NAUSEA [None]
  - NON-CARDIAC CHEST PAIN [None]
  - OSTEOPENIA [None]
  - OSTEOPOROSIS [None]
  - PAIN [None]
  - PAIN IN EXTREMITY [None]
  - PALPITATIONS [None]
  - POST THROMBOTIC SYNDROME [None]
  - REFLUX OESOPHAGITIS [None]
  - RENAL CYST [None]
  - RHABDOMYOLYSIS [None]
  - SCIATICA [None]
  - SPINAL COLUMN STENOSIS [None]
  - TENDONITIS [None]
  - THIRST [None]
